FAERS Safety Report 8818695 (Version 1)
Quarter: 2012Q4

REPORT INFORMATION
  Report Type: 
  Country: US (occurrence: US)
  Receive Date: 20121001
  Receipt Date: 20121001
  Transmission Date: 20130627
  Serious: Yes (Death, Hospitalization, Other)
  Sender: FDA-Public Use
  Company Number: US-ROCHE-1103451

PATIENT
  Sex: Female

DRUGS (6)
  1. HERCEPTIN [Suspect]
     Indication: BREAST CANCER
     Dosage: LOADING DOSE
     Route: 065
     Dates: start: 199901
  2. HERCEPTIN [Suspect]
     Indication: METASTASES TO BONE
     Dosage: MAINTAINANCE DOSE
     Route: 065
     Dates: start: 199901
  3. HERCEPTIN [Suspect]
     Indication: OFF LABEL USE
  4. XELODA [Suspect]
     Indication: PRODUCT USED FOR UNKNOWN INDICATION
     Route: 065
  5. 5-FU [Concomitant]
     Dosage: 10 CYCLE IN COMBINATION WITH CYCLOPHOSPHAMIDE AND ADRIAMYCIN
     Route: 065
  6. 5-FU [Concomitant]
     Route: 065
     Dates: start: 199901

REACTIONS (6)
  - Death [Fatal]
  - Nausea [Unknown]
  - Vomiting [Unknown]
  - Disease progression [Unknown]
  - Deafness [Unknown]
  - Post herpetic neuralgia [Unknown]
